FAERS Safety Report 14437074 (Version 1)
Quarter: 2018Q1

REPORT INFORMATION
  Report Type: Spontaneous
  Country: US (occurrence: US)
  Receive Date: 20180125
  Receipt Date: 20180125
  Transmission Date: 20180509
  Serious: Yes (Other)
  Sender: FDA-Public Use
  Company Number: US-009507513-1801USA007149

PATIENT
  Sex: Female
  Weight: 61.22 kg

DRUGS (1)
  1. KEYTRUDA [Suspect]
     Active Substance: PEMBROLIZUMAB
     Indication: NON-SMALL CELL LUNG CANCER
     Dosage: UNK
     Dates: start: 201701, end: 201709

REACTIONS (7)
  - Malignant neoplasm progression [Unknown]
  - Acne [Unknown]
  - Decreased appetite [Unknown]
  - Pruritus [Unknown]
  - Diffuse large B-cell lymphoma [Unknown]
  - Movement disorder [Unknown]
  - Weight decreased [Unknown]

NARRATIVE: CASE EVENT DATE: 2017
